FAERS Safety Report 7801505-3 (Version None)
Quarter: 2011Q4

REPORT INFORMATION
  Report Type: 
  Country: None (occurrence: None)
  Receive Date: 20111007
  Receipt Date: 20110929
  Transmission Date: 20120403
  Serious: Yes (Hospitalization)
  Sender: FDA-Public Use
  Company Number: US-JNJFOC-20111000789

PATIENT
  Sex: Female
  Weight: 77.11 kg

DRUGS (5)
  1. ZOCOR [Concomitant]
     Route: 048
     Dates: start: 20070101
  2. NAPROXEN [Concomitant]
     Indication: PAIN
     Route: 048
  3. LORTAB [Suspect]
     Indication: PAIN
     Route: 048
     Dates: start: 20030101
  4. DURAGESIC-100 [Suspect]
     Indication: BACK PAIN
     Route: 062
     Dates: start: 20030101
  5. ENABLEX [Concomitant]
     Indication: BLADDER DISORDER
     Route: 048
     Dates: start: 20080101

REACTIONS (4)
  - PRODUCT QUALITY ISSUE [None]
  - OVARIAN ENLARGEMENT [None]
  - URINARY INCONTINENCE [None]
  - WRONG TECHNIQUE IN DRUG USAGE PROCESS [None]
